FAERS Safety Report 5815170-8 (Version None)
Quarter: 2008Q3

REPORT INFORMATION
  Report Type: 
  Country: None (occurrence: None)
  Receive Date: 20080718
  Receipt Date: 20080707
  Transmission Date: 20090109
  Serious: Yes (Other)
  Sender: FDA-Public Use
  Company Number: CA-ROCHE-574964

PATIENT
  Sex: Female

DRUGS (14)
  1. PEGASYS [Suspect]
     Indication: HEPATITIS C
     Dosage: PEG-INTERFERON ALFA 2A: SC, 180MCG/WK RIBAVIRIN: ORAL, STRENGTH: 200 MG, FORM: TABLET, 1000 MG DAILY
     Route: 050
     Dates: start: 20080121, end: 20080301
  2. PEGASYS [Suspect]
     Dosage: PEG-INTERFERON ALFA 2A: SC, 180MCG/WK. RIBAVIRIN: ORAL, STRENGTH: 200 MG, FORM: TABLET, 200 MG DAILY
     Route: 050
     Dates: start: 20080301, end: 20080706
  3. ALTACE [Concomitant]
     Indication: HYPERTENSION
     Route: 048
     Dates: end: 20080620
  4. 1-ALPHA LEO [Concomitant]
     Dosage: DRUG REPORTED: ONE ALPHA
  5. B COMPLEX 50 [Concomitant]
     Dosage: DRUG REPORTED: VITAMIN B50.
  6. PLAQUENIL [Concomitant]
  7. AMITRIPTYLINE HCL [Concomitant]
     Route: 048
  8. SERAX [Concomitant]
  9. TYLENOL [Concomitant]
     Indication: ARTHRITIS
     Dosage: DOSAGE REGIMEN: PRN
     Route: 048
  10. TYLENOL E.S. [Concomitant]
     Indication: ARTHRITIS
     Dosage: DOSAGE REGIMEN: PRN
     Route: 048
  11. TYLENOL W/ CODEINE NO. 2 [Concomitant]
     Indication: ARTHRITIS
     Dosage: DOSAGE REGIMEN: PRN
     Route: 048
  12. FERROUS GLUCONATE [Concomitant]
  13. VITAMIN B-12 [Concomitant]
  14. FOLIC ACID [Concomitant]

REACTIONS (7)
  - EPISTAXIS [None]
  - HAEMOGLOBIN DECREASED [None]
  - HEART RATE INCREASED [None]
  - HYPOTENSION [None]
  - PLATELET COUNT DECREASED [None]
  - PRURITUS [None]
  - SKIN NODULE [None]
